FAERS Safety Report 6664063-5 (Version None)
Quarter: 2010Q2

REPORT INFORMATION
  Report Type: 
  Country: None (occurrence: None)
  Receive Date: 20100401
  Receipt Date: 20100329
  Transmission Date: 20101027
  Serious: Yes (Hospitalization)
  Sender: FDA-Public Use
  Company Number: A0852495A

PATIENT
  Age: 42 Year
  Sex: Male

DRUGS (1)
  1. ROSIGLITAZONE MALEATE [Suspect]
     Indication: DIABETES MELLITUS
     Dosage: 4MG PER DAY
     Route: 048

REACTIONS (6)
  - ANGINA PECTORIS [None]
  - BLADDER CANCER [None]
  - CARDIAC DISORDER [None]
  - DYSPNOEA [None]
  - PROSTATE CANCER [None]
  - RENAL FAILURE [None]
